FAERS Safety Report 18197037 (Version 1)
Quarter: 2020Q3

REPORT INFORMATION
  Report Type: Spontaneous
  Country: US (occurrence: US)
  Receive Date: 20200826
  Receipt Date: 20200826
  Transmission Date: 20201103
  Serious: Yes (Disabling, Other)
  Sender: FDA-Public Use
  Company Number: None

PATIENT
  Age: 42 Year
  Sex: Female
  Weight: 65.25 kg

DRUGS (2)
  1. CIPROFLOXACIN. [Suspect]
     Active Substance: CIPROFLOXACIN
     Indication: URINARY TRACT INFECTION
     Dosage: ?          QUANTITY:1 TABLET(S);?
     Route: 048
     Dates: start: 20180910, end: 20180915
  2. CIPROFLOXACIN. [Suspect]
     Active Substance: CIPROFLOXACIN
     Indication: KIDNEY INFECTION
     Dosage: ?          QUANTITY:1 TABLET(S);?
     Route: 048
     Dates: start: 20180910, end: 20180915

REACTIONS (22)
  - Condition aggravated [None]
  - Tendon disorder [None]
  - Quality of life decreased [None]
  - Hypersomnia [None]
  - Pain [None]
  - Connective tissue disorder [None]
  - Anxiety [None]
  - Cognitive disorder [None]
  - Toxicity to various agents [None]
  - Myalgia [None]
  - Asthenia [None]
  - Paraesthesia [None]
  - Emotional distress [None]
  - Hypoaesthesia [None]
  - Periarthritis [None]
  - Injury [None]
  - Bedridden [None]
  - Fatigue [None]
  - Depression [None]
  - General physical health deterioration [None]
  - Muscle rupture [None]
  - Neck injury [None]

NARRATIVE: CASE EVENT DATE: 20180924
